FAERS Safety Report 12326152 (Version 1)
Quarter: 2016Q2

REPORT INFORMATION
  Report Type: Spontaneous
  Country: US (occurrence: None)
  Receive Date: 20160502
  Receipt Date: 20160502
  Transmission Date: 20160815
  Serious: Yes (Hospitalization, Other)
  Sender: FDA-Public Use
  Company Number: None

PATIENT
  Age: 33 Year
  Sex: Female
  Weight: 63.5 kg

DRUGS (2)
  1. HIBICLENS [Suspect]
     Active Substance: CHLORHEXIDINE GLUCONATE
     Indication: PREOPERATIVE CARE
     Dosage: 4 OUNCE(S) ONCE A DAY APPKIED TO A SURFACE, USUALLY THE SKIN
     Route: 061
     Dates: start: 20160409, end: 20160411
  2. NUVARING [Concomitant]
     Active Substance: ETHINYL ESTRADIOL\ETONOGESTREL

REACTIONS (6)
  - Skin fissures [None]
  - Erythema [None]
  - Pruritus [None]
  - Skin disorder [None]
  - Burning sensation [None]
  - Wound [None]

NARRATIVE: CASE EVENT DATE: 20160410
